FAERS Safety Report 9849060 (Version 2)
Quarter: 2014Q1

REPORT INFORMATION
  Report Type: Spontaneous
  Country: JP (occurrence: JP)
  Receive Date: 20140128
  Receipt Date: 20140205
  Transmission Date: 20141002
  Serious: Yes (Hospitalization)
  Sender: FDA-Public Use
  Company Number: JP-PFIZER INC-2014013196

PATIENT
  Age: 45 Year
  Sex: Female

DRUGS (2)
  1. CORTRIL [Suspect]
     Indication: POSTPARTUM HYPOPITUITARISM
     Dosage: 5 MG, UNK
     Route: 048
  2. LEVOFLOXACIN [Suspect]
     Indication: SINUSITIS
     Dosage: 500 MG, UNK
     Route: 048

REACTIONS (1)
  - Mental disorder [Recovering/Resolving]
